FAERS Safety Report 8560988 (Version 4)
Quarter: 2015Q4

REPORT INFORMATION
  Report Type: Spontaneous
  Country: US (occurrence: US)
  Receive Date: 20120514
  Receipt Date: 20151110
  Transmission Date: 20160305
  Serious: Yes (Other)
  Sender: FDA-Public Use
  Company Number: US-GLAXOSMITHKLINE-A0864633A

PATIENT
  Sex: Female

DRUGS (18)
  1. LANOXIN [Concomitant]
     Active Substance: DIGOXIN
  2. POTASSIUM [Concomitant]
     Active Substance: POTASSIUM
  3. AVANDIA [Suspect]
     Active Substance: ROSIGLITAZONE MALEATE
     Dosage: 8 MG, QD
  4. PREMARIN [Concomitant]
     Active Substance: ESTROGENS, CONJUGATED
  5. DIGOXIN. [Concomitant]
     Active Substance: DIGOXIN
  6. FUROSEMIDE. [Concomitant]
     Active Substance: FUROSEMIDE
  7. TERAZOL 3 VAGINAL CREAM [Concomitant]
  8. K-DUR [Concomitant]
     Active Substance: POTASSIUM CHLORIDE
  9. LOTENSIN [Concomitant]
     Active Substance: BENAZEPRIL HYDROCHLORIDE
  10. LIPITOR [Concomitant]
     Active Substance: ATORVASTATIN CALCIUM
  11. HUMULIN NOS [Concomitant]
     Active Substance: INSULIN HUMAN
  12. HUMALOG [Concomitant]
     Active Substance: INSULIN LISPRO
  13. GLUCOPHAGE [Concomitant]
     Active Substance: METFORMIN HYDROCHLORIDE
  14. AVANDIA [Suspect]
     Active Substance: ROSIGLITAZONE MALEATE
     Indication: DIABETES MELLITUS
     Dosage: UNK
  15. ALDACTONE [Concomitant]
     Active Substance: SPIRONOLACTONE
  16. PRECOSE [Concomitant]
     Active Substance: ACARBOSE
  17. GLYBURIDE. [Concomitant]
     Active Substance: GLYBURIDE
  18. METOPROLOL [Concomitant]
     Active Substance: METOPROLOL

REACTIONS (14)
  - Malaise [Unknown]
  - Injury [Unknown]
  - Angiopathy [Unknown]
  - Performance status decreased [Unknown]
  - Hypersensitivity [Unknown]
  - Disability [Not Recovered/Not Resolved]
  - Stent placement [Unknown]
  - General physical health deterioration [Unknown]
  - Cardiac failure congestive [Not Recovered/Not Resolved]
  - Quality of life decreased [Unknown]
  - Myocardial infarction [Unknown]
  - Pain in extremity [Unknown]
  - Eye disorder [Unknown]
  - Hepatotoxicity [Unknown]
